FAERS Safety Report 9852741 (Version 1)
Quarter: 2014Q1

REPORT INFORMATION
  Report Type: Spontaneous
  Country: US (occurrence: None)
  Receive Date: 20140128
  Receipt Date: 20140128
  Transmission Date: 20141002
  Serious: Yes (Disabling)
  Sender: FDA-Public Use
  Company Number: None

PATIENT
  Age: 80 Year
  Sex: Female
  Weight: 67.59 kg

DRUGS (19)
  1. DEPAKOTE [Suspect]
     Indication: HEADACHE
     Dosage: 1 TABLET, 2X DAILY, BY MOUTH
     Route: 048
     Dates: start: 20090601, end: 20140105
  2. DEPAKOTE [Suspect]
     Indication: PROPHYLAXIS
     Dosage: 1 TABLET, 2X DAILY, BY MOUTH
     Route: 048
     Dates: start: 20090601, end: 20140105
  3. TREXIMET [Concomitant]
  4. TRAMADOL [Concomitant]
  5. ASA [Concomitant]
  6. MIRALAX [Concomitant]
  7. ALPRAZALAM [Concomitant]
  8. MULTIVITAMINS [Concomitant]
  9. GABALON [Concomitant]
  10. MYLANTA [Concomitant]
  11. MAXALT [Concomitant]
  12. RESTASIS [Concomitant]
  13. HYDROCODONE [Concomitant]
  14. RANITIDINE [Concomitant]
  15. CELEXA [Concomitant]
  16. FISH OIL [Concomitant]
  17. VITAMIN D [Concomitant]
  18. MAGNESIUM [Concomitant]
  19. CALCIUM [Concomitant]

REACTIONS (23)
  - Alopecia [None]
  - Abdominal pain upper [None]
  - Depression [None]
  - Anxiety [None]
  - Asthenia [None]
  - Confusional state [None]
  - Somnolence [None]
  - Ataxia [None]
  - Back pain [None]
  - Dry mouth [None]
  - Flatulence [None]
  - Myalgia [None]
  - Tremor [None]
  - Headache [None]
  - Deafness [None]
  - Blindness [None]
  - Weight increased [None]
  - Speech disorder [None]
  - Nuchal rigidity [None]
  - Faecal incontinence [None]
  - Dermatitis [None]
  - Cerebral atrophy [None]
  - Rhinorrhoea [None]
